FAERS Safety Report 9175601 (Version 2)
Quarter: 2013Q2

REPORT INFORMATION
  Report Type: Spontaneous
  Country: US (occurrence: US)
  Receive Date: 20130320
  Receipt Date: 20130416
  Transmission Date: 20140414
  Serious: No
  Sender: FDA-Public Use
  Company Number: US-JNJFOC-20130209783

PATIENT
  Age: 3 Decade
  Sex: Female

DRUGS (3)
  1. INVEGA SUSTENNA [Suspect]
     Indication: PRODUCT USED FOR UNKNOWN INDICATION
     Route: 030
  2. LITHIUM [Concomitant]
     Route: 065
  3. DEPAKOTE [Concomitant]
     Route: 065

REACTIONS (1)
  - Drug ineffective [Not Recovered/Not Resolved]
